FAERS Safety Report 15344056 (Version 1)
Quarter: 2018Q3

REPORT INFORMATION
  Report Type: Spontaneous
  Country: US (occurrence: US)
  Receive Date: 20180903
  Receipt Date: 20180903
  Transmission Date: 20181010
  Serious: Yes (Death, Hospitalization)
  Sender: FDA-Public Use
  Company Number: US-BIOVITRUM-2017US0557

PATIENT
  Age: 4 Year
  Sex: Female
  Weight: 23 kg

DRUGS (7)
  1. KINERET [Suspect]
     Active Substance: ANAKINRA
     Indication: STILL^S DISEASE
     Dates: start: 201603, end: 201606
  2. MUPIROCIN. [Concomitant]
     Active Substance: MUPIROCIN
     Dates: start: 201605
  3. PRELONE [Concomitant]
     Active Substance: PREDNISOLONE
     Dates: start: 20160627
  4. PRELONE [Concomitant]
     Active Substance: PREDNISOLONE
     Dates: start: 20160624, end: 20160626
  5. KINERET [Suspect]
     Active Substance: ANAKINRA
     Dates: start: 20160804
  6. AMOXICILLIN. [Concomitant]
     Active Substance: AMOXICILLIN
  7. KEFLEX [Concomitant]
     Active Substance: CEPHALEXIN
     Dates: start: 2016

REACTIONS (4)
  - Hypoaesthesia [Unknown]
  - Cytomegalovirus infection [Recovered/Resolved]
  - Chills [Unknown]
  - Malaise [Unknown]

NARRATIVE: CASE EVENT DATE: 20160628
